FAERS Safety Report 11183804 (Version 2)
Quarter: 2015Q2

REPORT INFORMATION
  Report Type: Spontaneous
  Country: US (occurrence: US)
  Receive Date: 20150612
  Receipt Date: 20150623
  Transmission Date: 20150821
  Serious: Yes (Death, Hospitalization)
  Sender: FDA-Public Use
  Company Number: US-MERCK-1506USA005704

PATIENT
  Age: 74 Year
  Sex: Male

DRUGS (14)
  1. NOXAFIL [Suspect]
     Active Substance: POSACONAZOLE
     Indication: FUNGAEMIA
     Dosage: 600 MG, UNK
     Route: 048
     Dates: start: 20150519, end: 20150519
  2. LASIX [Concomitant]
     Active Substance: FUROSEMIDE
  3. IRON (UNSPECIFIED) [Concomitant]
     Active Substance: IRON
  4. COUMADIN [Concomitant]
     Active Substance: WARFARIN SODIUM
  5. NOXAFIL [Suspect]
     Active Substance: POSACONAZOLE
     Dosage: 300 MG, UNK
     Route: 048
     Dates: start: 20150520, end: 20150526
  6. POTASSIUM (UNSPECIFIED) [Concomitant]
     Active Substance: POTASSIUM
  7. ZEBETA [Concomitant]
     Active Substance: BISOPROLOL FUMARATE
  8. COLACE [Concomitant]
     Active Substance: DOCUSATE SODIUM
  9. AMIODARONE [Concomitant]
     Active Substance: AMIODARONE
  10. PROTONIX [Concomitant]
     Active Substance: PANTOPRAZOLE SODIUM
  11. GLIPIZIDE. [Concomitant]
     Active Substance: GLIPIZIDE
  12. ASPIRIN. [Concomitant]
     Active Substance: ASPIRIN
  13. KEFLEX [Concomitant]
     Active Substance: CEPHALEXIN
  14. ASCORBIC ACID. [Concomitant]
     Active Substance: ASCORBIC ACID

REACTIONS (8)
  - Death [Fatal]
  - Confusional state [Recovered/Resolved]
  - Disturbance in attention [Recovered/Resolved]
  - Eye disorder [Recovered/Resolved]
  - Feeding disorder [Recovered/Resolved]
  - Mental impairment [Recovered/Resolved]
  - Physical disability [Recovered/Resolved]
  - Abasia [Recovered/Resolved]

NARRATIVE: CASE EVENT DATE: 20150520
